FAERS Safety Report 25535646 (Version 1)
Quarter: 2025Q3

REPORT INFORMATION
  Report Type: Spontaneous
  Country: US (occurrence: US)
  Receive Date: 20250709
  Receipt Date: 20250709
  Transmission Date: 20251021
  Serious: No
  Sender: Haleon PLC
  Company Number: US-HALEON-2250869

PATIENT
  Sex: Female
  Weight: 77.1 kg

DRUGS (5)
  1. FLONASE [Suspect]
     Active Substance: FLUTICASONE PROPIONATE
     Indication: Product used for unknown indication
  2. ALBUTEROL SULFATE [Suspect]
     Active Substance: ALBUTEROL SULFATE
     Indication: Product used for unknown indication
  3. REMODULIN [Suspect]
     Active Substance: TREPROSTINIL
     Indication: Pulmonary arterial hypertension
     Route: 058
  4. REMODULIN [Suspect]
     Active Substance: TREPROSTINIL
     Route: 058
  5. REMODULIN [Suspect]
     Active Substance: TREPROSTINIL
     Route: 058
     Dates: start: 20250603

REACTIONS (4)
  - Heart rate increased [Not Recovered/Not Resolved]
  - Fear [Not Recovered/Not Resolved]
  - Drug effect less than expected [Unknown]
  - Stress [Not Recovered/Not Resolved]
